FAERS Safety Report 6056548-X (Version None)
Quarter: 2009Q1

REPORT INFORMATION
  Report Type: 
  Country: None (occurrence: None)
  Receive Date: 20090126
  Receipt Date: 20090126
  Transmission Date: 20090719
  Serious: No
  Sender: FDA-Public Use
  Company Number: None

PATIENT
  Sex: Female
  Weight: 90.7194 kg

DRUGS (1)
  1. JANUVIA [Suspect]
     Indication: DIABETES MELLITUS
     Dosage: 100MG
     Dates: start: 20080801, end: 20080901

REACTIONS (6)
  - HEADACHE [None]
  - NASAL CONGESTION [None]
  - PRURITUS [None]
  - RASH [None]
  - URTICARIA [None]
  - WEIGHT INCREASED [None]
